FAERS Safety Report 8774195 (Version 5)
Quarter: 2013Q3

REPORT INFORMATION
  Report Type: Spontaneous
  Country: US (occurrence: US)
  Receive Date: 20120907
  Receipt Date: 20130806
  Transmission Date: 20140515
  Serious: Yes (Hospitalization, Disabling, Other)
  Sender: FDA-Public Use
  Company Number: US-009507513-1208USA011475

PATIENT
  Sex: Female
  Weight: 57.6 kg

DRUGS (4)
  1. FOSAMAX [Suspect]
     Indication: BONE DISORDER
     Dosage: 10 MG, QD
     Route: 048
     Dates: start: 1999
  2. FOSAMAX [Suspect]
     Dosage: 70 MG, QW
     Route: 048
     Dates: end: 201110
  3. ALENDRONATE SODIUM [Suspect]
     Dosage: 70 MG, QW
     Route: 048
  4. ACTONEL [Suspect]
     Indication: BONE DISORDER
     Dosage: 35 MG, QW
     Route: 048
     Dates: start: 201103, end: 201108

REACTIONS (15)
  - Femur fracture [Not Recovered/Not Resolved]
  - Open reduction of fracture [Unknown]
  - Mental status changes [Unknown]
  - Low turnover osteopathy [Not Recovered/Not Resolved]
  - Fall [Unknown]
  - Osteopenia [Unknown]
  - Depression [Recovered/Resolved]
  - Anxiety [Recovered/Resolved]
  - Cardiomegaly [Unknown]
  - Osteoporosis [Unknown]
  - Hypertension [Unknown]
  - Melanocytic naevus [Unknown]
  - Dementia Alzheimer^s type [Unknown]
  - Arthritis [Unknown]
  - Abdominal pain upper [Recovered/Resolved]
